FAERS Safety Report 5116608-4 (Version None)
Quarter: 2006Q3

REPORT INFORMATION
  Report Type: 
  Country: None (occurrence: None)
  Receive Date: 20060928
  Receipt Date: 20060921
  Transmission Date: 20061208
  Serious: Yes (Death)
  Sender: FDA-Public Use
  Company Number: IN-AVENTIS-200619938GDDC

PATIENT
  Age: 43 Year
  Sex: Female

DRUGS (5)
  1. CYCLOPHOSPHAMIDE [Suspect]
     Indication: BREAST CANCER
     Dosage: DOSE: 100 MG/M**2 DAILY DAYS 1 TO 14
     Route: 048
     Dates: start: 20010101
  2. METHOTREXATE [Suspect]
     Indication: BREAST CANCER
     Dosage: DOSE: 40 MG/M**2 IN DAYS 1 AND 8
     Route: 042
     Dates: start: 20010101
  3. FLUOROURACIL [Suspect]
     Indication: BREAST CANCER
     Dosage: DOSE: 600 MG/M**2 ON DAYS 1 AND 8
     Route: 042
     Dates: start: 20010101
  4. RADIOTHERAPY [Suspect]
     Indication: BREAST CANCER
     Dosage: DOSE: 4000 CGY
  5. TAMOXIFEN CITRATE [Concomitant]
     Dates: start: 20020301

REACTIONS (5)
  - ACUTE PROMYELOCYTIC LEUKAEMIA [None]
  - BIOPSY BONE MARROW ABNORMAL [None]
  - COMA [None]
  - GENERAL PHYSICAL HEALTH DETERIORATION [None]
  - HAEMORRHAGE INTRACRANIAL [None]
